FAERS Safety Report 15410670 (Version 1)
Quarter: 2018Q3

REPORT INFORMATION
  Report Type: Spontaneous
  Country: US (occurrence: US)
  Receive Date: 20180920
  Receipt Date: 20180920
  Transmission Date: 20181010
  Serious: No
  Sender: FDA-Public Use
  Company Number: None

PATIENT
  Age: 54 Year
  Sex: Female
  Weight: 58.97 kg

DRUGS (1)
  1. LIOTHYRONINE SOD 5 MG TABS [Suspect]
     Active Substance: LIOTHYRONINE SODIUM
     Indication: HYPOTHYROIDISM
     Dates: start: 20180601, end: 20180614

REACTIONS (12)
  - Constipation [None]
  - Dry eye [None]
  - Diarrhoea [None]
  - Pruritus [None]
  - Condition aggravated [None]
  - Headache [None]
  - Pharyngeal oedema [None]
  - Eye swelling [None]
  - Irritable bowel syndrome [None]
  - Nausea [None]
  - Product substitution issue [None]
  - Productive cough [None]

NARRATIVE: CASE EVENT DATE: 20180601
